FAERS Safety Report 7683428-6 (Version None)
Quarter: 2011Q3

REPORT INFORMATION
  Report Type: 
  Country: None (occurrence: None)
  Receive Date: 20110815
  Receipt Date: 20110512
  Transmission Date: 20111222
  Serious: Yes (Hospitalization)
  Sender: FDA-Public Use
  Company Number: JP-ACTELION-A-CH2011-48712

PATIENT
  Sex: Male
  Weight: 55 kg

DRUGS (8)
  1. BERAPROST SODIUM [Concomitant]
  2. ASPIRIN [Concomitant]
  3. SPIRONOLACTONE [Concomitant]
  4. OXYGEN [Concomitant]
  5. TRACLEER [Suspect]
     Dosage: 62.5 MG, BID
     Route: 048
     Dates: start: 20060314, end: 20060320
  6. MEXILETINE HYDROCHLORIDE [Concomitant]
  7. TRACLEER [Suspect]
     Indication: PULMONARY ARTERIAL HYPERTENSION
     Dosage: 62.5 MG, TID
     Route: 048
     Dates: start: 20060321, end: 20060327
  8. TRACLEER [Suspect]
     Dosage: 125 MG, BID
     Route: 048
     Dates: start: 20060328, end: 20070110

REACTIONS (8)
  - LOCALISED OEDEMA [None]
  - CONCOMITANT DISEASE AGGRAVATED [None]
  - GALLBLADDER DISORDER [None]
  - HEPATIC CONGESTION [None]
  - VENTRICULAR TACHYCARDIA [None]
  - HEPATIC CIRRHOSIS [None]
  - ABDOMINAL PAIN [None]
  - ASCITES [None]
